FAERS Safety Report 4745398-X (Version None)
Quarter: 2005Q3

REPORT INFORMATION
  Report Type: 
  Country: None (occurrence: None)
  Receive Date: 20050815
  Receipt Date: 20050801
  Transmission Date: 20060218
  Serious: Yes (Other)
  Sender: FDA-Public Use
  Company Number: 2005110252

PATIENT
  Sex: Male
  Weight: 103.8737 kg

DRUGS (9)
  1. LISTERINE (MENTHOL, METHYL SALICYLATE, EUCALYPTOL, THYMOL) [Suspect]
     Dosage: ORAL TOPICAL
     Route: 048
  2. ASCORBIC ACID [Concomitant]
  3. TOPIRAMATE [Concomitant]
  4. DIAZEPAM [Concomitant]
  5. FEXOFENADINE HYDROCHLORIDE [Concomitant]
  6. TAMSULOSIN HYDROCHLORIDE (TAMSULOSIN HYDROCHLORIDE) [Concomitant]
  7. MULTIVITAMINS (ASCORBIC ACID, ERGOCALCIFEROL, FOLIC ACID, NICOTINAMIDE [Concomitant]
  8. CALCIUM (CALCIUM) [Concomitant]
  9. BECOSYM FORTE (NICOTINAMIDE, PYRIDOXINE HYDROCHLORIDE, RIBOFLAVIN, THI [Concomitant]

REACTIONS (2)
  - BRAIN DAMAGE [None]
  - BRAIN NEOPLASM BENIGN [None]
